FAERS Safety Report 19320131 (Version 1)
Quarter: 2021Q2

REPORT INFORMATION
  Report Type: Spontaneous
  Country: US (occurrence: US)
  Receive Date: 20210528
  Receipt Date: 20210528
  Transmission Date: 20210717
  Serious: No
  Sender: FDA-Public Use
  Company Number: None

PATIENT
  Age: 70 Year
  Sex: Male
  Weight: 114.31 kg

DRUGS (2)
  1. VANCOMYCIN (VANCOMYCIN HCL 125MG CAP) [Suspect]
     Active Substance: VANCOMYCIN HYDROCHLORIDE
     Indication: CLOSTRIDIUM DIFFICILE INFECTION
     Route: 048
     Dates: start: 20200704, end: 20200706
  2. REMDESIVIR (REMDESIVIR 100MG/VIAL INJ) [Suspect]
     Active Substance: REMDESIVIR
     Indication: COVID-19 PNEUMONIA
     Dates: start: 20200703, end: 20200706

REACTIONS (3)
  - Acute kidney injury [None]
  - Hypovolaemia [None]
  - Hypophagia [None]

NARRATIVE: CASE EVENT DATE: 20200705
